FAERS Safety Report 5222396-3 (Version None)
Quarter: 2007Q1

REPORT INFORMATION
  Report Type: 
  Country: None (occurrence: None)
  Receive Date: 20070129
  Receipt Date: 20060210
  Transmission Date: 20070707
  Serious: No
  Sender: FDA-Public Use
  Company Number: US-BRISTOL-MYERS SQUIBB COMPANY-13279294

PATIENT
  Age: 40 Year
  Sex: Male
  Weight: 79 kg

DRUGS (3)
  1. TRAZODONE HCL [Suspect]
     Indication: SLEEP DISORDER
     Dates: start: 20000101
  2. TRAZODONE HCL [Suspect]
     Indication: DEPRESSION
     Dates: start: 20000101
  3. WELLBUTRIN [Concomitant]

REACTIONS (2)
  - ABNORMAL BEHAVIOUR [None]
  - SUICIDAL IDEATION [None]
